FAERS Safety Report 9928387 (Version 2)
Quarter: 2015Q4

REPORT INFORMATION
  Report Type: Report from Study
  Country: US (occurrence: US)
  Receive Date: 20140227
  Receipt Date: 20151120
  Transmission Date: 20160305
  Serious: Yes (Hospitalization)
  Sender: FDA-Public Use
  Company Number: US-ROCHE-1337668

PATIENT
  Age: 85 Year
  Sex: Male

DRUGS (20)
  1. AVASTIN [Suspect]
     Active Substance: BEVACIZUMAB
     Indication: PRODUCT USED FOR UNKNOWN INDICATION
     Route: 065
  2. GLIPIZIDE. [Concomitant]
     Active Substance: GLIPIZIDE
  3. LUCENTIS [Suspect]
     Active Substance: RANIBIZUMAB
     Indication: DIABETIC EYE DISEASE
  4. ZYMAR [Concomitant]
     Active Substance: GATIFLOXACIN
  5. TIMOLOL. [Concomitant]
     Active Substance: TIMOLOL
     Dosage: EYE DROPS BOTH EYES BID
     Route: 065
  6. LIDOCAINE. [Concomitant]
     Active Substance: LIDOCAINE
     Route: 065
  7. BETADINE [Concomitant]
     Active Substance: POVIDONE-IODINE
     Route: 065
  8. LEVAQUIN [Concomitant]
     Active Substance: LEVOFLOXACIN
  9. TYLENOL [Concomitant]
     Active Substance: ACETAMINOPHEN
  10. NEO-SYNEPHRINE [Concomitant]
     Active Substance: PHENYLEPHRINE HYDROCHLORIDE
     Route: 065
  11. COSOPT [Concomitant]
     Active Substance: DORZOLAMIDE HYDROCHLORIDE\TIMOLOL MALEATE
     Dosage: BOTH EYES BID
     Route: 065
  12. VIGAMOX [Concomitant]
     Active Substance: MOXIFLOXACIN HYDROCHLORIDE
     Dosage: QID FOR 3 DAYS
     Route: 065
  13. CRESTOR [Concomitant]
     Active Substance: ROSUVASTATIN CALCIUM
  14. SYNTHROID [Concomitant]
     Active Substance: LEVOTHYROXINE SODIUM
  15. TRAMADOL. [Concomitant]
     Active Substance: TRAMADOL
  16. LUCENTIS [Suspect]
     Active Substance: RANIBIZUMAB
     Indication: DIABETIC RETINAL OEDEMA
     Route: 050
  17. MYDRIACYL [Concomitant]
     Active Substance: TROPICAMIDE
     Route: 065
  18. TETRACAINE. [Concomitant]
     Active Substance: TETRACAINE
     Route: 065
  19. LUCENTIS [Suspect]
     Active Substance: RANIBIZUMAB
     Indication: DIABETIC RETINOPATHY
     Route: 050
  20. COUMADIN [Concomitant]
     Active Substance: WARFARIN SODIUM

REACTIONS (15)
  - Dehydration [Unknown]
  - Hyponatraemia [Unknown]
  - Metamorphopsia [Unknown]
  - Vitreous detachment [Unknown]
  - Vitreous degeneration [Unknown]
  - Retinal depigmentation [Unknown]
  - Visual impairment [Unknown]
  - Astigmatism [Unknown]
  - Cutis laxa [Unknown]
  - Visual acuity reduced [Unknown]
  - Posterior capsule opacification [Unknown]
  - Hypoacusis [Unknown]
  - Visual field defect [Unknown]
  - Off label use [Unknown]
  - Vision blurred [Unknown]

NARRATIVE: CASE EVENT DATE: 20111012
